FAERS Safety Report 17515975 (Version 1)
Quarter: 2020Q1

REPORT INFORMATION
  Report Type: Spontaneous
  Country: US (occurrence: US)
  Receive Date: 20200309
  Receipt Date: 20200309
  Transmission Date: 20200409
  Serious: Yes (Hospitalization, Other)
  Sender: FDA-Public Use
  Company Number: US-PFIZER INC-2020100483

PATIENT
  Age: 66 Year
  Sex: Male
  Weight: 68.27 kg

DRUGS (1)
  1. CHANTIX [Suspect]
     Active Substance: VARENICLINE TARTRATE
     Indication: SMOKING CESSATION THERAPY
     Dosage: 1 MG, 1X/DAY (ONE CHANTIX A DAY/ TAKE ONE DAILY/ ONLY TAKE ONE CHANTIX, IN THE MORNING)
     Route: 048

REACTIONS (6)
  - Abnormal dreams [Unknown]
  - Intentional product use issue [Unknown]
  - Pneumonia [Unknown]
  - Nightmare [Unknown]
  - Feeling abnormal [Unknown]
  - Renal disorder [Unknown]
